FAERS Safety Report 7777853-2 (Version None)
Quarter: 2011Q3

REPORT INFORMATION
  Report Type: 
  Country: None (occurrence: None)
  Receive Date: 20110926
  Receipt Date: 20110915
  Transmission Date: 20111222
  Serious: No
  Sender: FDA-Public Use
  Company Number: US-BIOGENIDEC-2011BI035778

PATIENT
  Age: 51 Year
  Sex: Female

DRUGS (1)
  1. TYSABRI [Suspect]
     Indication: MULTIPLE SCLEROSIS
     Route: 042
     Dates: start: 20110907

REACTIONS (11)
  - DIARRHOEA [None]
  - IRRITABLE BOWEL SYNDROME [None]
  - HEADACHE [None]
  - DYSPNOEA [None]
  - PAIN [None]
  - ASTHENIA [None]
  - CHILLS [None]
  - COUGH [None]
  - INFLUENZA LIKE ILLNESS [None]
  - PRURITUS [None]
  - FATIGUE [None]
